FAERS Safety Report 5016692-2 (Version None)
Quarter: 2006Q2

REPORT INFORMATION
  Report Type: 
  Country: None (occurrence: None)
  Receive Date: 20060414
  Receipt Date: 20060126
  Transmission Date: 20061013
  Serious: No
  Sender: FDA-Public Use
  Company Number: 2006SP000471

PATIENT
  Age: 80 Year
  Sex: Male
  Weight: 68.0396 kg

DRUGS (14)
  1. LUNESTA [Suspect]
     Indication: INSOMNIA
     Dosage: SEE IMAGE
     Route: 048
     Dates: start: 20050101, end: 20050101
  2. LUNESTA [Suspect]
     Indication: INSOMNIA
     Dosage: SEE IMAGE
     Route: 048
     Dates: start: 20060125, end: 20060125
  3. LUNESTA [Suspect]
     Indication: INSOMNIA
     Dosage: SEE IMAGE
     Route: 048
     Dates: start: 20050101
  4. LUNESTA [Suspect]
     Indication: INSOMNIA
     Dosage: SEE IMAGE
     Route: 048
     Dates: start: 20050101
  5. STALEVO 100 [Concomitant]
  6. SIMVASTATIN [Concomitant]
  7. METOPROLOL TARTRATE [Concomitant]
  8. DILTIAZEM [Concomitant]
  9. ACETYLSALICYLIC ACID SRT [Concomitant]
  10. ASCORBIC ACID [Concomitant]
  11. FOLIC ACID [Concomitant]
  12. CALCIUM WITH VITAMIN D [Concomitant]
  13. FISH OIL [Concomitant]
  14. VITAMIN E [Concomitant]

REACTIONS (1)
  - DRUG EFFECT DECREASED [None]
